FAERS Safety Report 9453044 (Version 1)
Quarter: 2013Q3

REPORT INFORMATION
  Report Type: Spontaneous
  Country: CA (occurrence: CA)
  Receive Date: 20130812
  Receipt Date: 20130812
  Transmission Date: 20140515
  Serious: Yes (Other)
  Sender: FDA-Public Use
  Company Number: CA-TEVA-425479USA

PATIENT
  Age: 57 Year
  Sex: Female
  Weight: 98 kg

DRUGS (9)
  1. GABAPENTIN [Suspect]
     Dosage: 1200 MILLIGRAM DAILY;
     Route: 065
  2. GABAPENTIN [Suspect]
     Dosage: 2400 MILLIGRAM DAILY;
     Route: 065
  3. CYMBALTA [Suspect]
     Dosage: 90 MILLIGRAM DAILY;
     Route: 048
  4. CYMBALTA [Suspect]
     Dosage: 60 MILLIGRAM DAILY; DELAYED RELEASE
     Route: 048
  5. AMANTADINE [Concomitant]
     Route: 065
  6. ATIVAN [Concomitant]
     Route: 065
  7. MODAFINIL [Concomitant]
     Route: 065
  8. NEXIUM [Concomitant]
     Route: 065
  9. SYNTHROID [Concomitant]
     Route: 065

REACTIONS (6)
  - Asthenia [Recovered/Resolved]
  - Diarrhoea [Recovered/Resolved]
  - Loss of consciousness [Recovered/Resolved]
  - Paraesthesia oral [Recovered/Resolved]
  - Somnolence [Recovered/Resolved]
  - Vomiting [Recovered/Resolved]
